FAERS Safety Report 4276977-4 (Version None)
Quarter: 2004Q1

REPORT INFORMATION
  Report Type: 
  Country: None (occurrence: None)
  Receive Date: 20040120
  Receipt Date: 20040105
  Transmission Date: 20041129
  Serious: Yes (Death)
  Sender: FDA-Public Use
  Company Number: US060947

PATIENT
  Age: 74 Year
  Sex: Female
  Weight: 42.9 kg

DRUGS (8)
  1. ARANESP [Suspect]
     Indication: RENAL FAILURE CHRONIC
     Dosage: 30 MCG, WEEKLY, SC
     Route: 058
     Dates: start: 20031112, end: 20031230
  2. ERYTHROPOIETIN HUMAN [Suspect]
     Dosage: 4000 U, TWICE WEEKLY
     Dates: start: 20030114, end: 20031112
  3. RAMIPRIL [Concomitant]
  4. CLONIDINE [Concomitant]
  5. NIFEDIPINE [Concomitant]
  6. CYANOCOBALAMIN [Concomitant]
  7. FERROUS SULFATE TAB [Concomitant]
  8. CALCIUM CARBONATE [Concomitant]

REACTIONS (4)
  - DRUG INEFFECTIVE [None]
  - REFRACTORY ANAEMIA [None]
  - RENAL FAILURE [None]
  - VITAMIN B12 INCREASED [None]
